FAERS Safety Report 9601757 (Version 1)
Quarter: 2013Q4

REPORT INFORMATION
  Report Type: Spontaneous
  Country: US (occurrence: US)
  Receive Date: 20131007
  Receipt Date: 20131007
  Transmission Date: 20140711
  Serious: No
  Sender: FDA-Public Use
  Company Number: US-009507513-1309USA014076

PATIENT
  Age: 25 Year
  Sex: Female
  Weight: 43.54 kg

DRUGS (1)
  1. NUVARING [Suspect]
     Indication: CONTRACEPTION
     Dosage: UNK
     Route: 067
     Dates: start: 20130828

REACTIONS (2)
  - Incorrect product storage [Unknown]
  - Headache [Not Recovered/Not Resolved]
